FAERS Safety Report 13454569 (Version 1)
Quarter: 2017Q2

REPORT INFORMATION
  Report Type: Spontaneous
  Country: US (occurrence: US)
  Receive Date: 20170418
  Receipt Date: 20170418
  Transmission Date: 20170830
  Serious: No
  Sender: FDA-Public Use
  Company Number: None

PATIENT
  Age: 75 Year
  Sex: Male

DRUGS (1)
  1. GENGRAF [Suspect]
     Active Substance: CYCLOSPORINE
     Indication: PRODUCT USED FOR UNKNOWN INDICATION
     Dosage: 3 CAPS QAM, 2 CAPS QP BID ORAL
     Route: 048
     Dates: start: 20160405, end: 20170418

REACTIONS (2)
  - Glossodynia [None]
  - Tongue erythema [None]

NARRATIVE: CASE EVENT DATE: 20170418
